FAERS Safety Report 9856427 (Version 2)
Quarter: 2014Q1

REPORT INFORMATION
  Report Type: Report from Study
  Country: CA (occurrence: CA)
  Receive Date: 20140130
  Receipt Date: 20140130
  Transmission Date: 20141002
  Serious: Yes (Other)
  Sender: FDA-Public Use
  Company Number: CA-JNJFOC-20131208950

PATIENT
  Age: 48 Year
  Sex: Female
  Weight: 56.8 kg

DRUGS (10)
  1. REMICADE [Suspect]
     Indication: CROHN^S DISEASE
     Route: 042
     Dates: start: 20131206
  2. REMICADE [Suspect]
     Indication: CROHN^S DISEASE
     Route: 042
     Dates: start: 201306
  3. REMICADE [Suspect]
     Indication: CROHN^S DISEASE
     Route: 042
     Dates: start: 201312
  4. REMICADE [Suspect]
     Indication: CROHN^S DISEASE
     Route: 042
     Dates: start: 201305
  5. AZATHIOPRINE [Concomitant]
     Route: 048
  6. PENTASA [Concomitant]
     Route: 048
  7. MULTIVITAMINS [Concomitant]
     Route: 065
  8. CALCIUM [Concomitant]
     Route: 065
  9. VITAMIN D [Concomitant]
     Route: 065
  10. VITAMIN B12 [Concomitant]
     Route: 065

REACTIONS (4)
  - Anal fistula [Recovered/Resolved]
  - Muscular weakness [Recovered/Resolved]
  - Crohn^s disease [Unknown]
  - Dizziness [Recovered/Resolved]
